FAERS Safety Report 6186235-9 (Version None)
Quarter: 2009Q2

REPORT INFORMATION
  Report Type: 
  Country: None (occurrence: None)
  Receive Date: 20090511
  Receipt Date: 20090430
  Transmission Date: 20091009
  Serious: Yes (Hospitalization, Other)
  Sender: FDA-Public Use
  Company Number: PHHY2009JP04532

PATIENT
  Sex: Female
  Weight: 43 kg

DRUGS (11)
  1. FEMARA [Suspect]
     Indication: BREAST CANCER
     Dosage: 2.5 MG, QD
     Route: 048
     Dates: start: 20080101, end: 20090203
  2. ZOMETA [Suspect]
     Indication: BREAST CANCER
     Dosage: UNK
     Route: 042
     Dates: start: 20070518, end: 20081226
  3. TAKEPRON [Concomitant]
     Indication: GASTRIC ULCER
     Dosage: 30 MG
     Route: 048
     Dates: start: 20070413, end: 20090212
  4. MUCOSTA [Concomitant]
     Indication: GASTRIC ULCER
     Dosage: 200 MCG
     Route: 048
     Dates: start: 20070907, end: 20090212
  5. STRONTIUM CHLORIDE SR-89 [Concomitant]
     Indication: METASTASES TO BONE
     Route: 042
  6. ADRIACIN [Concomitant]
     Indication: CHEMOTHERAPY
     Dosage: 78 MG
     Route: 042
     Dates: start: 20070518, end: 20070803
  7. ENDOXAN [Concomitant]
     Indication: CHEMOTHERAPY
     Dosage: 785 MG
     Route: 042
     Dates: start: 20070518, end: 20070803
  8. PACLITAXEL [Concomitant]
     Indication: CHEMOTHERAPY
     Dosage: 105 MG
     Route: 042
     Dates: start: 20070824, end: 20071214
  9. GRAN [Concomitant]
     Indication: CHEMOTHERAPY
     Dosage: 300 MCG
     Route: 058
     Dates: start: 20071102, end: 20071214
  10. DEPAS [Concomitant]
     Indication: INSOMNIA
     Dosage: 0.5 MG
     Route: 048
     Dates: start: 20070511
  11. ALESION [Concomitant]
     Indication: URTICARIA
     Dosage: 20 MG
     Route: 048
     Dates: start: 20070329, end: 20081226

REACTIONS (12)
  - ALANINE AMINOTRANSFERASE INCREASED [None]
  - BLOOD LACTATE DEHYDROGENASE INCREASED [None]
  - BREAST CANCER RECURRENT [None]
  - C-REACTIVE PROTEIN INCREASED [None]
  - CARDIOMEGALY [None]
  - DISEASE PROGRESSION [None]
  - DYSPNOEA [None]
  - DYSPNOEA EXERTIONAL [None]
  - GAMMA-GLUTAMYLTRANSFERASE INCREASED [None]
  - GINGIVAL BLEEDING [None]
  - RESPIRATORY DISORDER [None]
  - THROMBOCYTOPENIA [None]
